FAERS Safety Report 19633984 (Version 1)
Quarter: 2021Q3

REPORT INFORMATION
  Report Type: Spontaneous
  Country: US (occurrence: US)
  Receive Date: 20210730
  Receipt Date: 20210730
  Transmission Date: 20211014
  Serious: No
  Sender: FDA-Public Use
  Company Number: US-AMGEN-USASP2021115302

PATIENT
  Age: 81 Year
  Sex: Female

DRUGS (1)
  1. PROLIA [Suspect]
     Active Substance: DENOSUMAB
     Indication: OSTEOARTHRITIS
     Dosage: 60 MILLIGRAM
     Route: 065
     Dates: start: 20190123

REACTIONS (3)
  - Off label use [Unknown]
  - Dental operation [Unknown]
  - Tooth extraction [Unknown]

NARRATIVE: CASE EVENT DATE: 2021
